FAERS Safety Report 6439807-8 (Version None)
Quarter: 2009Q4

REPORT INFORMATION
  Report Type: 
  Country: None (occurrence: None)
  Receive Date: 20091112
  Receipt Date: 20091112
  Transmission Date: 20100525
  Serious: No
  Sender: FDA-Public Use
  Company Number: None

PATIENT
  Sex: Female
  Weight: 72.5755 kg

DRUGS (2)
  1. LAMOTRIGINE [Suspect]
     Indication: CONVULSION
     Dosage: 200 MG BID TAB.
     Dates: start: 20090401
  2. LAMOTRIGINE [Suspect]
     Indication: EPILEPSY
     Dosage: 200 MG BID TAB.
     Dates: start: 20090401

REACTIONS (4)
  - CONFUSIONAL STATE [None]
  - CONVULSION [None]
  - MIGRAINE [None]
  - PRODUCT SUBSTITUTION ISSUE [None]
